FAERS Safety Report 4431193-8 (Version None)
Quarter: 2004Q3

REPORT INFORMATION
  Report Type: 
  Country: None (occurrence: None)
  Receive Date: 20040824
  Receipt Date: 20040813
  Transmission Date: 20050211
  Serious: Yes (Death)
  Sender: FDA-Public Use
  Company Number: US-BRISTOL-MYERS SQUIBB COMPANY-12670634

PATIENT
  Sex: Male

DRUGS (1)
  1. BLEOMYCIN SULFATE [Suspect]
     Indication: TESTIS CANCER

REACTIONS (1)
  - DRUG TOXICITY [None]
